FAERS Safety Report 7682221-8 (Version None)
Quarter: 2011Q3

REPORT INFORMATION
  Report Type: 
  Country: None (occurrence: None)
  Receive Date: 20110815
  Receipt Date: 20110809
  Transmission Date: 20111222
  Serious: Yes (Other)
  Sender: FDA-Public Use
  Company Number: US-PFIZER INC-2011183533

PATIENT
  Sex: Female

DRUGS (1)
  1. EFFEXOR XR [Suspect]
     Dosage: UNK
     Route: 048
     Dates: end: 20110101

REACTIONS (4)
  - URTICARIA [None]
  - SWOLLEN TONGUE [None]
  - OEDEMA [None]
  - SWELLING FACE [None]
